FAERS Safety Report 6140937-9 (Version None)
Quarter: 2009Q2

REPORT INFORMATION
  Report Type: 
  Country: None (occurrence: None)
  Receive Date: 20090402
  Receipt Date: 20080730
  Transmission Date: 20091009
  Serious: Yes (Other)
  Sender: FDA-Public Use
  Company Number: US-KINGPHARMUSA00001-K200800918

PATIENT
  Sex: Female

DRUGS (1)
  1. SKELAXIN [Suspect]

REACTIONS (3)
  - ANAPHYLACTIC REACTION [None]
  - LOCALISED OEDEMA [None]
  - OEDEMA MOUTH [None]
